FAERS Safety Report 7329296-3 (Version None)
Quarter: 2011Q1

REPORT INFORMATION
  Report Type: 
  Country: None (occurrence: None)
  Receive Date: 20110303
  Receipt Date: 20110225
  Transmission Date: 20110831
  Serious: Yes (Other)
  Sender: FDA-Public Use
  Company Number: B0702425A

PATIENT
  Sex: Male

DRUGS (3)
  1. SEROQUEL [Concomitant]
     Route: 048
  2. DEPAS [Concomitant]
     Route: 048
  3. PAXIL [Suspect]
     Indication: DEPRESSION
     Route: 048
     Dates: start: 20101224, end: 20110126

REACTIONS (1)
  - RHABDOMYOLYSIS [None]
